FAERS Safety Report 4513143-9 (Version None)
Quarter: 2004Q4

REPORT INFORMATION
  Report Type: 
  Country: None (occurrence: None)
  Receive Date: 20041124
  Receipt Date: 20041113
  Transmission Date: 20050328
  Serious: Yes (Other)
  Sender: FDA-Public Use
  Company Number: HQWYE470915NOV04

PATIENT
  Sex: Male

DRUGS (3)
  1. EFFEXOR XR [Suspect]
     Dosage: SEE IMAGE
     Dates: start: 20000101, end: 20030101
  2. EFFEXOR XR [Suspect]
     Dosage: SEE IMAGE
     Dates: start: 20030101, end: 20030101
  3. EFFEXOR XR [Suspect]
     Dosage: SEE IMAGE
     Dates: start: 20030101

REACTIONS (9)
  - ANGER [None]
  - CEREBRAL DISORDER [None]
  - CRYING [None]
  - DRUG DEPENDENCE [None]
  - DRUG WITHDRAWAL SYNDROME [None]
  - MOOD SWINGS [None]
  - PARAESTHESIA [None]
  - SHOCK [None]
  - SUICIDAL IDEATION [None]
